FAERS Safety Report 9375054 (Version 2)
Quarter: 2013Q3

REPORT INFORMATION
  Report Type: Spontaneous
  Country: US (occurrence: US)
  Receive Date: 20130628
  Receipt Date: 20130912
  Transmission Date: 20140515
  Serious: Yes (Hospitalization, Other)
  Sender: FDA-Public Use
  Company Number: US-AMGEN-USASP2013044849

PATIENT
  Age: 0 Day
  Sex: Female
  Weight: 2.58 kg

DRUGS (7)
  1. ENBREL [Suspect]
     Indication: PRODUCT USED FOR UNKNOWN INDICATION
     Dosage: 50 MG, QWK
     Route: 064
     Dates: start: 20050513
  2. ATENOLOL [Concomitant]
     Dosage: 25 MG, QD
     Route: 064
     Dates: start: 2001
  3. PRENATAL VITAMINS                  /07499601/ [Concomitant]
     Dosage: 1 TABLET, QD
     Route: 064
     Dates: start: 201111
  4. MIRALAX                            /00754501/ [Concomitant]
     Dosage: UNK UNK, QD
     Route: 064
     Dates: start: 200310
  5. FIORICET [Concomitant]
     Dosage: 1-2 TABLET, AS NECESSARY
     Route: 064
     Dates: start: 200208
  6. VITAMIN B12 [Concomitant]
     Dosage: 1 TABLET, QD
     Route: 064
     Dates: start: 201011
  7. UNISOM                             /00000402/ [Concomitant]
     Dosage: 1 TABLET, QD
     Route: 064
     Dates: start: 201111, end: 201206

REACTIONS (4)
  - Lung disorder [Recovered/Resolved]
  - Bradycardia neonatal [Unknown]
  - Oxygen saturation decreased [Unknown]
  - Neonatal pneumonia [Recovered/Resolved]
